FAERS Safety Report 12170112 (Version 1)
Quarter: 2016Q1

REPORT INFORMATION
  Report Type: Spontaneous
  Country: US (occurrence: US)
  Receive Date: 20160311
  Receipt Date: 20160311
  Transmission Date: 20160526
  Serious: No
  Sender: FDA-Public Use
  Company Number: US-AMGEN-USASP2016028148

PATIENT
  Sex: Female

DRUGS (1)
  1. ENBREL [Suspect]
     Active Substance: ETANERCEPT
     Indication: ANKYLOSING SPONDYLITIS
     Dosage: UNK
     Route: 065
     Dates: start: 2005

REACTIONS (6)
  - Eye disorder [Unknown]
  - Paraesthesia [Unknown]
  - Drug dose omission [Unknown]
  - Visual impairment [Unknown]
  - Hypoaesthesia [Unknown]
  - Pain [Unknown]
